FAERS Safety Report 22122172 (Version 5)
Quarter: 2023Q2

REPORT INFORMATION
  Report Type: Spontaneous
  Country: PT (occurrence: PT)
  Receive Date: 20230321
  Receipt Date: 20230418
  Transmission Date: 20230721
  Serious: Yes (Other)
  Sender: FDA-Public Use
  Company Number: None

PATIENT
  Age: 45 Year
  Sex: Male
  Weight: 150.5 kg

DRUGS (10)
  1. COBICISTAT\DARUNAVIR ETHANOLATE [Interacting]
     Active Substance: COBICISTAT\DARUNAVIR ETHANOLATE
     Indication: Hepatitis C
     Dosage: UNK UNK, QD (800/150 MG PER DAY)
     Route: 065
     Dates: start: 2019
  2. COBICISTAT\DARUNAVIR ETHANOLATE [Interacting]
     Active Substance: COBICISTAT\DARUNAVIR ETHANOLATE
     Indication: HIV infection
  3. BUDESONIDE [Interacting]
     Active Substance: BUDESONIDE
     Indication: Asthma
     Dosage: 200 UG (PER DAY)
     Route: 065
  4. FLUTICASONE PROPIONATE [Interacting]
     Active Substance: FLUTICASONE PROPIONATE
     Indication: Asthma
     Dosage: 92 UG, QD
     Route: 065
  5. RALTEGRAVIR [Concomitant]
     Active Substance: RALTEGRAVIR
     Indication: Hepatitis C
     Dosage: 1200 MG, QD
     Route: 065
     Dates: start: 2019
  6. RALTEGRAVIR [Concomitant]
     Active Substance: RALTEGRAVIR
     Indication: HIV infection
  7. DOLUTEGRAVIR [Concomitant]
     Active Substance: DOLUTEGRAVIR
  8. BECLOMETHASONE DIPROPIONATE [Concomitant]
     Active Substance: BECLOMETHASONE DIPROPIONATE
  9. PREDNISOLONE [Concomitant]
     Active Substance: PREDNISOLONE
  10. DORAVIRINE [Concomitant]
     Active Substance: DORAVIRINE

REACTIONS (15)
  - Plethoric face [Recovering/Resolving]
  - Drug interaction [Recovered/Resolved]
  - Abdominal distension [Recovering/Resolving]
  - Cushingoid [Recovering/Resolving]
  - Lipohypertrophy [Recovering/Resolving]
  - Weight decreased [Unknown]
  - Metabolic disorder [Recovering/Resolving]
  - Hypokalaemia [Recovering/Resolving]
  - Hypertension [Recovering/Resolving]
  - Asthenia [Unknown]
  - Muscular weakness [Unknown]
  - Cushing^s syndrome [Recovering/Resolving]
  - Skin striae [Recovering/Resolving]
  - Secondary adrenocortical insufficiency [Recovering/Resolving]
  - Gait disturbance [Recovering/Resolving]
